FAERS Safety Report 9818088 (Version 2)
Quarter: 2014Q1

REPORT INFORMATION
  Report Type: Spontaneous
  Country: US (occurrence: US)
  Receive Date: 20140115
  Receipt Date: 20140115
  Transmission Date: 20141002
  Serious: Yes (Other)
  Sender: FDA-Public Use
  Company Number: US-PERRIGO-14US000145

PATIENT
  Age: 45 Year
  Sex: Female
  Weight: 73.47 kg

DRUGS (2)
  1. ACETAMINOPHEN 500MG 484 [Suspect]
     Indication: HEADACHE
     Dosage: 1500 MG, PRN
     Route: 048
     Dates: start: 2013
  2. PRINIVIL [Concomitant]
     Indication: HYPERTENSION
     Dosage: UNK, UNK
     Route: 048
     Dates: start: 2004

REACTIONS (9)
  - Anxiety [Recovered/Resolved]
  - Nervousness [Recovered/Resolved]
  - Dizziness [Recovering/Resolving]
  - Blood potassium decreased [Unknown]
  - Hypertension [Recovered/Resolved]
  - Asthenia [Recovered/Resolved]
  - Somnolence [Recovered/Resolved]
  - Lethargy [Recovered/Resolved]
  - Incorrect dose administered [Not Recovered/Not Resolved]
